FAERS Safety Report 5959354-7 (Version None)
Quarter: 2008Q4

REPORT INFORMATION
  Report Type: 
  Country: None (occurrence: None)
  Receive Date: 20081119
  Receipt Date: 20081119
  Transmission Date: 20090506
  Serious: Yes (Life-Threatening)
  Sender: FDA-Public Use
  Company Number: None

PATIENT
  Age: 64 Year
  Sex: Female
  Weight: 104 kg

DRUGS (1)
  1. ACETYLCYSTEINE 20% 200MG/ML - 30ML AMERICAN REGENT [Suspect]
     Indication: OVERDOSE
     Dosage: 91ML IV
     Route: 042
     Dates: start: 20081113, end: 20081113

REACTIONS (1)
  - ANAPHYLACTOID REACTION [None]
